FAERS Safety Report 9556998 (Version 2)
Quarter: 2013Q3

REPORT INFORMATION
  Report Type: Report from Study
  Country: DE (occurrence: DE)
  Receive Date: 20130926
  Receipt Date: 20130926
  Transmission Date: 20140515
  Serious: Yes (Hospitalization)
  Sender: FDA-Public Use
  Company Number: CHPA2012DE020860

PATIENT
  Sex: 0

DRUGS (34)
  1. FENISTIL [Suspect]
     Dosage: 4 MG, UNK
     Route: 042
     Dates: start: 20120419
  2. FENISTIL [Suspect]
     Dosage: UNK
     Route: 042
     Dates: start: 20120503
  3. METHYLPREDNISOLONE [Suspect]
     Indication: MULTIPLE SCLEROSIS
     Dosage: 100 MG, UNK
     Route: 042
     Dates: start: 20120419, end: 20120419
  4. METHYLPREDNISOLONE [Suspect]
     Dosage: 100 MG, QD
     Route: 042
     Dates: start: 20120503, end: 20120503
  5. METHYLPREDNISOLONE [Suspect]
     Dosage: 1000 MG, QD
     Route: 042
     Dates: start: 20130219, end: 20130221
  6. METHYLPREDNISOLONE [Suspect]
     Dosage: 1000 MG, UNK
     Route: 065
     Dates: start: 20120302, end: 20120306
  7. PLACEBO [Suspect]
     Indication: MULTIPLE SCLEROSIS
     Dosage: UNK, ONCE/SINGLE
     Route: 042
     Dates: start: 20120419, end: 20120419
  8. PLACEBO [Suspect]
     Dosage: UNK, ONCE/SINGLE
     Route: 042
     Dates: start: 20120503, end: 20120503
  9. BENSERAZIDE [Concomitant]
     Indication: RESTLESS LEGS SYNDROME
     Dosage: 150 MG, UNK
     Route: 048
     Dates: start: 20120902, end: 20121130
  10. BENSERAZIDE [Concomitant]
     Dosage: 100 MG, UNK
     Route: 048
     Dates: start: 20120730, end: 20120901
  11. BENSERAZIDE [Concomitant]
     Dosage: 75 MG
     Route: 048
  12. IBUPROFEN [Concomitant]
     Indication: HEADACHE
     Dosage: 600 MG, QD
     Route: 048
     Dates: start: 20120429, end: 20120429
  13. IBUPROFEN [Concomitant]
     Dosage: 400 MG, UNK
     Route: 048
     Dates: start: 20130116
  14. LEVODOPA [Concomitant]
     Dosage: 200 MG, BID
     Route: 048
     Dates: start: 20120607, end: 20120712
  15. LEVODOPA [Concomitant]
     Dosage: 600 MG, UNK
     Dates: start: 20120902, end: 20121103
  16. LEVODOPA [Concomitant]
     Dosage: 300 MG, UNK
     Dates: start: 20121104
  17. LEVODOPA [Concomitant]
     Dosage: 200 MG, UNK
     Dates: start: 20120713
  18. PARACETAMOL [Concomitant]
     Dosage: 1000 MG, UNK
     Route: 042
     Dates: start: 20120419
  19. PARACETAMOL [Concomitant]
     Dosage: 1000 MG, UNK
     Route: 042
     Dates: start: 20120503
  20. RANITIC [Concomitant]
     Dosage: 50 MG, UNK
     Route: 042
     Dates: start: 20120419
  21. RANITIC [Concomitant]
     Dosage: 50 MG, UNK
     Route: 042
     Dates: start: 20120503
  22. ZOLMITRIPTAN [Concomitant]
     Indication: HEADACHE
     Dosage: 5 MG, UNK
     Route: 048
     Dates: start: 20120503, end: 20120503
  23. PREGABALIN [Concomitant]
     Indication: RESTLESS LEGS SYNDROME
     Dosage: 50 MG, UNK
     Dates: start: 20120904, end: 20121019
  24. PREGABALIN [Concomitant]
     Indication: MULTIPLE SCLEROSIS
     Dosage: 200 MG, UNK
     Dates: start: 20121019, end: 20121129
  25. PREGABALIN [Concomitant]
     Dosage: 250 MG, UNK
     Dates: start: 20121130, end: 20130321
  26. BACLOFEN [Concomitant]
     Indication: MULTIPLE SCLEROSIS
     Dosage: 5 MG, UNK
     Dates: start: 20120902, end: 20121018
  27. BACLOFEN [Concomitant]
     Dosage: 15 MG, UNK
     Dates: start: 20121019, end: 20121129
  28. BACLOFEN [Concomitant]
     Dosage: 30 MG, UNK
     Dates: start: 20121130, end: 20130321
  29. TRIAMCINOLONE [Concomitant]
     Indication: MULTIPLE SCLEROSIS
     Dosage: 40 MG, UNK
     Dates: start: 20130115, end: 20130115
  30. TRIAMCINOLONE [Concomitant]
     Dosage: 40 MG, UNK
     Dates: start: 20121016, end: 20121016
  31. TRIAMCINOLONE [Concomitant]
     Dosage: 40 MG, UNK
     Dates: start: 20121128, end: 20121128
  32. AMITRIPTYLINE [Concomitant]
     Indication: HEADACHE
     Dosage: 50 MG, UNK
     Dates: start: 20120306
  33. URBASON                                 /GFR/ [Concomitant]
     Indication: MULTIPLE SCLEROSIS
     Dosage: 1000 MG, UNK
     Dates: start: 20120302, end: 20120306
  34. URBASON                                 /GFR/ [Concomitant]
     Dosage: 1000 MG, UNK
     Dates: start: 20130219, end: 20130221

REACTIONS (1)
  - Dyspnoea [Recovered/Resolved with Sequelae]
